FAERS Safety Report 4353380-X (Version None)
Quarter: 2004Q2

REPORT INFORMATION
  Report Type: 
  Country: None (occurrence: None)
  Receive Date: 20040430
  Receipt Date: 20040416
  Transmission Date: 20050107
  Serious: Yes (Life-Threatening, Hospitalization)
  Sender: FDA-Public Use
  Company Number: CEL-2004-00656-ROC

PATIENT
  Age: 8 Year
  Sex: Female
  Weight: 64 kg

DRUGS (2)
  1. METADATE CD [Suspect]
     Indication: ATTENTION DEFICIT/HYPERACTIVITY DISORDER
     Dosage: 40 MG QAM PO
     Route: 048
     Dates: start: 20020802, end: 20040401
  2. METHYLPHENIDATE (BRAND UNSPECIFIED) (METHYLPHENIDATE) [Suspect]
     Indication: ATTENTION DEFICIT/HYPERACTIVITY DISORDER
     Dosage: 10 MG DAILY PO
     Route: 048
     Dates: start: 20010601, end: 20040401

REACTIONS (1)
  - HEPATIC FAILURE [None]
